FAERS Safety Report 9119907 (Version 1)
Quarter: 2013Q1

REPORT INFORMATION
  Report Type: Spontaneous
  Country: US (occurrence: US)
  Receive Date: 20130226
  Receipt Date: 20130226
  Transmission Date: 20140127
  Serious: Yes (Other)
  Sender: FDA-Public Use
  Company Number: US-SHIRE-ALL1-2013-00920

PATIENT
  Age: 17 Year
  Sex: Male
  Weight: 63.49 kg

DRUGS (1)
  1. VYVANSE [Suspect]
     Indication: PRODUCT USED FOR UNKNOWN INDICATION
     Dosage: 70 MG, ONE DOSE
     Route: 048

REACTIONS (5)
  - Hallucination [Not Recovered/Not Resolved]
  - Drug diversion [Recovered/Resolved]
  - Tongue biting [Not Recovered/Not Resolved]
  - Headache [Not Recovered/Not Resolved]
  - Dry mouth [Not Recovered/Not Resolved]
